FAERS Safety Report 10426913 (Version 1)
Quarter: 2014Q3

REPORT INFORMATION
  Report Type: Spontaneous
  Country: CH (occurrence: CH)
  Receive Date: 20140903
  Receipt Date: 20140903
  Transmission Date: 20150326
  Serious: Yes (Other)
  Sender: FDA-Public Use
  Company Number: CH-MERCK-1408CHE015439

PATIENT
  Age: 47 Year
  Sex: Male

DRUGS (3)
  1. PHENYTOIN. [Interacting]
     Active Substance: PHENYTOIN
     Indication: EPILEPSY
     Dosage: TOTAL DAILY DOSE : 400MG
     Route: 048
     Dates: start: 20100127
  2. TEMODAL [Suspect]
     Active Substance: TEMOZOLOMIDE
     Indication: GLIOBLASTOMA
     Dosage: 120 MG DAILY
     Route: 048
     Dates: start: 201004, end: 201004
  3. PHENYTOIN. [Interacting]
     Active Substance: PHENYTOIN
     Dosage: 275MG PER DAY
     Route: 048

REACTIONS (1)
  - Drug interaction [Recovered/Resolved]

NARRATIVE: CASE EVENT DATE: 201004
